FAERS Safety Report 5218173-X (Version None)
Quarter: 2007Q1

REPORT INFORMATION
  Report Type: 
  Country: None (occurrence: None)
  Receive Date: 20070124
  Receipt Date: 20070112
  Transmission Date: 20070707
  Serious: Yes (Other)
  Sender: FDA-Public Use
  Company Number: JP-PFIZER INC-2006149343

PATIENT
  Sex: Female

DRUGS (15)
  1. MIGLITOL TABLET [Suspect]
     Indication: DIABETES MELLITUS
     Dosage: DAILY DOSE:25MG
     Route: 048
     Dates: start: 20061125, end: 20061125
  2. BETAHISTINE MESILATE [Concomitant]
     Route: 048
  3. NITRENDIPINE [Concomitant]
     Route: 048
  4. PRAVASTATIN SODIUM [Concomitant]
     Indication: HYPERLIPIDAEMIA
     Route: 048
  5. CEPHADOL [Concomitant]
     Indication: NASOPHARYNGITIS
     Dates: start: 20061110
  6. CHONDNAL [Concomitant]
     Indication: BACK PAIN
     Dates: start: 20061120
  7. CHONDNAL [Concomitant]
     Indication: ARTHRALGIA
  8. CLOFENAMIDE [Concomitant]
     Indication: BACK PAIN
     Dates: start: 20061120
  9. CLOFENAMIDE [Concomitant]
     Indication: ARTHRALGIA
  10. THIAMINE HCL [Concomitant]
     Indication: BACK PAIN
     Dates: start: 20061120
  11. THIAMINE HCL [Concomitant]
     Indication: ARTHRALGIA
  12. CYANOCOBALAMIN [Concomitant]
     Indication: BACK PAIN
     Dates: start: 20061120
  13. CYANOCOBALAMIN [Concomitant]
     Indication: ARTHRALGIA
  14. NABUMETONE [Concomitant]
     Indication: BACK PAIN
     Dates: start: 20061120
  15. NABUMETONE [Concomitant]
     Indication: ARTHRALGIA

REACTIONS (3)
  - LOSS OF CONSCIOUSNESS [None]
  - NAUSEA [None]
  - TREMOR [None]
